FAERS Safety Report 12907978 (Version 1)
Quarter: 2016Q4

REPORT INFORMATION
  Report Type: Spontaneous
  Country: US (occurrence: US)
  Receive Date: 20161102
  Receipt Date: 20161102
  Transmission Date: 20170207
  Serious: Yes (Other)
  Sender: FDA-Public Use
  Company Number: None

PATIENT
  Age: 4 Year
  Sex: Male
  Weight: 16.2 kg

DRUGS (1)
  1. SINGULAIR [Suspect]
     Active Substance: MONTELUKAST SODIUM
     Indication: MULTIPLE ALLERGIES
     Route: 048
     Dates: start: 20161024, end: 20161101

REACTIONS (7)
  - Insomnia [None]
  - Irritability [None]
  - Defiant behaviour [None]
  - Aggression [None]
  - Somnambulism [None]
  - Abnormal behaviour [None]
  - Self-injurious ideation [None]

NARRATIVE: CASE EVENT DATE: 20161101
